FAERS Safety Report 6191815-0 (Version None)
Quarter: 2009Q2

REPORT INFORMATION
  Report Type: 
  Country: None (occurrence: None)
  Receive Date: 20090515
  Receipt Date: 20090512
  Transmission Date: 20091009
  Serious: Yes (Death, Hospitalization, Other)
  Sender: FDA-Public Use
  Company Number: US-JNJFOC-20080705821

PATIENT
  Sex: Female
  Weight: 74.39 kg

DRUGS (7)
  1. DURAGESIC-100 [Suspect]
     Route: 062
  2. DURAGESIC-100 [Suspect]
     Route: 062
  3. DURAGESIC-100 [Suspect]
     Indication: PAIN
     Route: 062
  4. METHADONE HCL [Suspect]
     Indication: DRUG USE FOR UNKNOWN INDICATION
  5. DIAZEPAM [Suspect]
     Indication: DRUG USE FOR UNKNOWN INDICATION
  6. CYCLOBENZAPRINE [Concomitant]
     Indication: DRUG USE FOR UNKNOWN INDICATION
  7. ALPRAZOLAM [Concomitant]

REACTIONS (5)
  - ACCIDENTAL OVERDOSE [None]
  - DRUG TOXICITY [None]
  - RASH [None]
  - WITHDRAWAL SYNDROME [None]
  - WRONG TECHNIQUE IN DRUG USAGE PROCESS [None]
